FAERS Safety Report 5527055-5 (Version None)
Quarter: 2007Q4

REPORT INFORMATION
  Report Type: 
  Country: None (occurrence: None)
  Receive Date: 20071127
  Receipt Date: 20071115
  Transmission Date: 20080405
  Serious: Yes (Congenital Anomaly)
  Sender: FDA-Public Use
  Company Number: ES-GILEAD-2007-0014366

PATIENT

DRUGS (5)
  1. VIREAD [Suspect]
     Indication: HIV INFECTION
     Route: 064
  2. SAQUINAVIR [Concomitant]
     Route: 064
  3. LAMIVUDINE [Concomitant]
     Route: 064
  4. D4T [Concomitant]
     Route: 064
  5. RITONAVIR [Concomitant]
     Route: 064

REACTIONS (2)
  - CRANIOFACIAL DYSOSTOSIS [None]
  - DRUG EXPOSURE DURING PREGNANCY [None]
